FAERS Safety Report 18119348 (Version 2)
Quarter: 2020Q3

REPORT INFORMATION
  Report Type: Spontaneous
  Country: BE (occurrence: BE)
  Receive Date: 20200806
  Receipt Date: 20200915
  Transmission Date: 20201103
  Serious: Yes (Other)
  Sender: FDA-Public Use
  Company Number: BE-VERTEX PHARMACEUTICALS-2020-014052

PATIENT
  Age: 20 Year

DRUGS (1)
  1. ORKAMBI [Suspect]
     Active Substance: IVACAFTOR\LUMACAFTOR
     Indication: CYSTIC FIBROSIS
     Dosage: (200 MG LUMACAFTOR/ 125 MG IVACAFTOR) FREQUENCY UNKNOWN
     Route: 048

REACTIONS (2)
  - Respiratory failure [Unknown]
  - Drug ineffective [Unknown]
